FAERS Safety Report 5345513-3 (Version None)
Quarter: 2007Q2

REPORT INFORMATION
  Report Type: 
  Country: None (occurrence: None)
  Receive Date: 20070601
  Receipt Date: 20070601
  Transmission Date: 20071010
  Serious: Yes (Death, Hospitalization)
  Sender: FDA-Public Use
  Company Number: None

PATIENT
  Age: 69 Year
  Sex: Male
  Weight: 81.1939 kg

DRUGS (6)
  1. CETUXIMAB [Suspect]
     Indication: PANCREATIC CARCINOMA
     Dosage: 250 MG
     Dates: start: 20070226, end: 20070409
  2. GEMCITABINE [Suspect]
     Indication: PANCREATIC CARCINOMA
     Dosage: 200 MG
     Dates: start: 20070305, end: 20070409
  3. NEURONTIN [Concomitant]
  4. LOTENSIN HCT [Concomitant]
  5. DULCOLAX [Concomitant]
  6. COMPAZINE [Concomitant]

REACTIONS (10)
  - BLOOD CULTURE POSITIVE [None]
  - ENTEROBACTER INFECTION [None]
  - LOSS OF CONSCIOUSNESS [None]
  - NAUSEA [None]
  - PLEURAL EFFUSION [None]
  - PNEUMONIA ASPIRATION [None]
  - RESPIRATORY FAILURE [None]
  - SINUSITIS [None]
  - SPUTUM CULTURE POSITIVE [None]
  - VOMITING [None]
